FAERS Safety Report 19096238 (Version 1)
Quarter: 2021Q2

REPORT INFORMATION
  Report Type: Spontaneous
  Country: US (occurrence: US)
  Receive Date: 20210405
  Receipt Date: 20210405
  Transmission Date: 20210717
  Serious: Yes (Hospitalization)
  Sender: FDA-Public Use
  Company Number: None

PATIENT
  Age: 77 Year
  Sex: Female
  Weight: 67.5 kg

DRUGS (6)
  1. BAMLANIVIMAB. [Suspect]
     Active Substance: BAMLANIVIMAB
     Indication: SARS-COV-2 TEST POSITIVE
     Dosage: ?          OTHER FREQUENCY:X 1;?
     Route: 041
     Dates: start: 20210403, end: 20210403
  2. CEFTRIAXONE. [Concomitant]
     Active Substance: CEFTRIAXONE
     Dates: start: 20210402
  3. TAMSULOSIN [Concomitant]
     Active Substance: TAMSULOSIN
     Dates: start: 20210402
  4. SODIUM CHLORIDE INJ .9% [Suspect]
     Active Substance: SODIUM CHLORIDE
     Indication: SARS-COV-2 TEST POSITIVE
     Dosage: ?          OTHER FREQUENCY:X1;?
     Route: 041
     Dates: start: 20210403, end: 20210403
  5. MORPHINE [Concomitant]
     Active Substance: MORPHINE
     Dates: start: 20210403
  6. EXOXAPARIN [Concomitant]
     Dates: start: 20210402

REACTIONS (2)
  - Vomiting [None]
  - Pneumonia aspiration [None]

NARRATIVE: CASE EVENT DATE: 20210403
